FAERS Safety Report 6645181-4 (Version None)
Quarter: 2010Q1

REPORT INFORMATION
  Report Type: 
  Country: None (occurrence: None)
  Receive Date: 20100308
  Receipt Date: 20100223
  Transmission Date: 20100710
  Serious: No
  Sender: FDA-Public Use
  Company Number: 2010-00291

PATIENT
  Age: 72 Year
  Sex: Female
  Weight: 81.6475 kg

DRUGS (12)
  1. ZICAM COLD REMEDY GEL SWABS [Suspect]
     Dosage: SPORADIC - 2 YEARS
     Dates: start: 20080401
  2. ZYRTEC [Concomitant]
  3. ALBUTERO/NEBULIZER [Concomitant]
  4. ADVAIR MDI [Concomitant]
  5. SPIRIVA [Concomitant]
  6. AMLODIPINE [Concomitant]
  7. LISINOPRIL [Concomitant]
  8. LOPRESSOR [Concomitant]
  9. ZOCOR [Concomitant]
  10. GLUCOPHAGE [Concomitant]
  11. REQUIP [Concomitant]
  12. ASPIRIN [Concomitant]

REACTIONS (2)
  - AGEUSIA [None]
  - ANOSMIA [None]
